FAERS Safety Report 10422162 (Version 3)
Quarter: 2014Q4

REPORT INFORMATION
  Report Type: Spontaneous
  Country: US (occurrence: US)
  Receive Date: 20140901
  Receipt Date: 20141106
  Transmission Date: 20150528
  Serious: Yes (Death, Hospitalization, Other)
  Sender: FDA-Public Use
  Company Number: US-009507513-1408USA016176

PATIENT
  Age: 57 Year
  Sex: Male
  Weight: 86.17 kg

DRUGS (8)
  1. EMEND [Suspect]
     Active Substance: APREPITANT
     Indication: PROPHYLAXIS OF NAUSEA AND VOMITING
     Dosage: 150 MG, ONCE
     Route: 042
     Dates: start: 20140808, end: 20140808
  2. ALDACTONE [Concomitant]
     Active Substance: SPIRONOLACTONE
  3. ALOXI [Concomitant]
     Active Substance: PALONOSETRON HYDROCHLORIDE
     Indication: ANTIEMETIC SUPPORTIVE CARE
     Dosage: TOTAL DAILY DOSE: 0.25 MG, UNK
     Route: 042
     Dates: start: 20140808, end: 20140808
  4. AVASTIN [Concomitant]
     Active Substance: BEVACIZUMAB
     Indication: CHEMOTHERAPY
     Dosage: TOTAL DAILY DOSE 650 MG
     Route: 042
     Dates: start: 20140808, end: 20140808
  5. OXALIPLATIN. [Concomitant]
     Active Substance: OXALIPLATIN
     Indication: CHEMOTHERAPY
     Dosage: TOTAL DAILY DOSE 250 MG
     Route: 042
     Dates: start: 20140808, end: 20140808
  6. OXYCODONE [Concomitant]
     Active Substance: OXYCODONE
  7. LASIX [Concomitant]
     Active Substance: FUROSEMIDE
  8. DEXAMETHASONE. [Concomitant]
     Active Substance: DEXAMETHASONE
     Indication: ANTIEMETIC SUPPORTIVE CARE
     Dosage: TOTAL DIALY DOSE: 8(UNITS NOT SPECIFIED)
     Route: 042
     Dates: start: 20140808, end: 20140808

REACTIONS (2)
  - Infusion site pain [Recovered/Resolved]
  - Colon cancer metastatic [Fatal]

NARRATIVE: CASE EVENT DATE: 20140808
